FAERS Safety Report 5213218-5 (Version None)
Quarter: 2007Q1

REPORT INFORMATION
  Report Type: 
  Country: None (occurrence: None)
  Receive Date: 20070119
  Receipt Date: 20070110
  Transmission Date: 20070707
  Serious: Yes (Death)
  Sender: FDA-Public Use
  Company Number: IT-AVENTIS-200710224EU

PATIENT

DRUGS (1)
  1. CLEXANE [Suspect]
     Indication: PULMONARY EMBOLISM
     Route: 058

REACTIONS (1)
  - DEATH [None]
